FAERS Safety Report 17983749 (Version 1)
Quarter: 2020Q3

REPORT INFORMATION
  Report Type: Spontaneous
  Country: US (occurrence: US)
  Receive Date: 20200705
  Receipt Date: 20200705
  Transmission Date: 20201103
  Serious: No
  Sender: FDA-Public Use
  Company Number: None

PATIENT
  Age: 41 Year
  Sex: Female
  Weight: 116.1 kg

DRUGS (1)
  1. EMGALITY [Suspect]
     Active Substance: GALCANEZUMAB-GNLM
     Indication: MIGRAINE
     Dates: start: 20200320

REACTIONS (7)
  - Arthralgia [None]
  - Irritability [None]
  - Weight increased [None]
  - Fatigue [None]
  - Constipation [None]
  - Inflammation [None]
  - Alopecia [None]

NARRATIVE: CASE EVENT DATE: 20200622
